FAERS Safety Report 4507606-X (Version None)
Quarter: 2004Q4

REPORT INFORMATION
  Report Type: 
  Country: None (occurrence: None)
  Receive Date: 20041118
  Receipt Date: 20041028
  Transmission Date: 20050328
  Serious: No
  Sender: FDA-Public Use
  Company Number: B0349608A

PATIENT
  Age: 26 Year
  Sex: Female

DRUGS (6)
  1. LITHIUM SALT        (GENERIC) (LITHIUM SALT) [Suspect]
     Dosage: PER DAY
  2. LAMICTAL [Suspect]
  3. RISPERDAL [Suspect]
  4. TOPIRAMATE [Suspect]
     Dosage: 75 MG
  5. VALPROATE SODIUM [Concomitant]
  6. CLONAZEPAM [Concomitant]

REACTIONS (8)
  - CONFUSIONAL STATE [None]
  - DISTURBANCE IN ATTENTION [None]
  - DRUG INTERACTION [None]
  - DYSPHORIA [None]
  - LETHARGY [None]
  - MANIA [None]
  - SKIN DISORDER [None]
  - THERAPEUTIC AGENT TOXICITY [None]
